FAERS Safety Report 21384042 (Version 2)
Quarter: 2022Q4

REPORT INFORMATION
  Report Type: Spontaneous
  Country: TR (occurrence: TR)
  Receive Date: 20220928
  Receipt Date: 20221014
  Transmission Date: 20230112
  Serious: No
  Sender: FDA-Public Use
  Company Number: TR-TOLMAR, INC.-22TR036651

PATIENT
  Age: 76 Year
  Sex: Male

DRUGS (1)
  1. ELIGARD [Suspect]
     Active Substance: LEUPROLIDE ACETATE
     Indication: Prostate cancer
     Dosage: 45 MILLIGRAM
     Dates: start: 20220627

REACTIONS (2)
  - Blood testosterone abnormal [Not Recovered/Not Resolved]
  - Prostatic specific antigen increased [Unknown]
